FAERS Safety Report 6911768-4 (Version None)
Quarter: 2010Q3

REPORT INFORMATION
  Report Type: 
  Country: None (occurrence: None)
  Receive Date: 20100806
  Receipt Date: 20080109
  Transmission Date: 20110219
  Serious: Yes (Hospitalization)
  Sender: FDA-Public Use
  Company Number: PHRM2008FR00621

PATIENT
  Age: 54 Year
  Sex: Female

DRUGS (5)
  1. LAMISIL [Suspect]
     Indication: ONYCHOMYCOSIS
     Dosage: 250 MG, QD
     Route: 048
     Dates: start: 20050101, end: 20070604
  2. LAMICTAL [Suspect]
     Indication: DRUG DISPENSING ERROR
     Dosage: 200 MG, UNK
     Route: 048
     Dates: start: 20070605, end: 20070711
  3. PROPOFAN [Concomitant]
     Indication: BACK PAIN
  4. EFFERALGAN [Concomitant]
     Dates: start: 20070615, end: 20070711
  5. PARACETAMOL [Concomitant]
     Dosage: UNK, UNK
     Dates: start: 20070701, end: 20070701

REACTIONS (25)
  - BRONCHIAL DISORDER [None]
  - CHEILITIS [None]
  - CHILLS [None]
  - CONJUNCTIVAL HYPERAEMIA [None]
  - CONJUNCTIVITIS [None]
  - CYTOLYTIC HEPATITIS [None]
  - DERMATITIS EXFOLIATIVE [None]
  - DRUG DISPENSING ERROR [None]
  - DRUG RASH WITH EOSINOPHILIA AND SYSTEMIC SYMPTOMS [None]
  - DYSPHAGIA [None]
  - ECZEMA [None]
  - EOSINOPHILIA [None]
  - FACE OEDEMA [None]
  - LEUKOCYTOSIS [None]
  - LYMPHOCYTIC INFILTRATION [None]
  - LYMPHOCYTOSIS [None]
  - LYMPHOPENIA [None]
  - MALAISE [None]
  - MUCOUS MEMBRANE DISORDER [None]
  - PURPURA [None]
  - PYREXIA [None]
  - RASH MACULO-PAPULAR [None]
  - RASH PRURITIC [None]
  - RENAL FAILURE ACUTE [None]
  - TOXIC SKIN ERUPTION [None]
